FAERS Safety Report 20035234 (Version 2)
Quarter: 2021Q4

REPORT INFORMATION
  Report Type: Spontaneous
  Country: PL (occurrence: PL)
  Receive Date: 20211104
  Receipt Date: 20211119
  Transmission Date: 20220303
  Serious: Yes (Other)
  Sender: FDA-Public Use
  Company Number: PL-AMGEN-POLSP2021116677

PATIENT
  Sex: Male

DRUGS (7)
  1. DEXAMETHASONE [Suspect]
     Active Substance: DEXAMETHASONE
     Indication: Product used for unknown indication
     Dosage: UNK
     Route: 065
  2. KYPROLIS [Suspect]
     Active Substance: CARFILZOMIB
     Indication: Product used for unknown indication
     Dosage: UNK 14 VIALS
     Route: 065
     Dates: start: 20210520
  3. KYPROLIS [Suspect]
     Active Substance: CARFILZOMIB
     Dosage: UNK 14 VIALS
     Route: 065
     Dates: start: 20210607
  4. KYPROLIS [Suspect]
     Active Substance: CARFILZOMIB
     Dosage: UNK 14 VIALS
     Route: 065
     Dates: start: 20210614
  5. KYPROLIS [Suspect]
     Active Substance: CARFILZOMIB
     Dosage: UNK 14 VIALS
     Route: 065
     Dates: start: 20210513
  6. KYPROLIS [Suspect]
     Active Substance: CARFILZOMIB
     Dosage: UNK 4 VIALS
     Route: 065
     Dates: start: 20210506
  7. KYPROLIS [Suspect]
     Active Substance: CARFILZOMIB
     Dosage: UNK
     Route: 065

REACTIONS (3)
  - Renal failure [Unknown]
  - Disease progression [Unknown]
  - Off label use [Unknown]
